FAERS Safety Report 5721779-2 (Version None)
Quarter: 2008Q2

REPORT INFORMATION
  Report Type: 
  Country: None (occurrence: None)
  Receive Date: 20080429
  Receipt Date: 20080415
  Transmission Date: 20081010
  Serious: Yes (Hospitalization)
  Sender: FDA-Public Use
  Company Number: DE-ROCHE-559314

PATIENT
  Sex: Male
  Weight: 79 kg

DRUGS (8)
  1. GRANISETRON HYDROCHLORIDE [Suspect]
     Indication: ANTIEMETIC SUPPORTIVE CARE
     Route: 048
  2. RITUXIMAB [Suspect]
     Indication: MANTLE CELL LYMPHOMA
     Route: 042
  3. VINCRISTINE [Suspect]
     Indication: DRUG USE FOR UNKNOWN INDICATION
     Route: 042
  4. EMEND [Suspect]
     Indication: ANTIEMETIC SUPPORTIVE CARE
     Route: 048
  5. ALLOPURINOL [Concomitant]
     Route: 048
  6. AMLODIPINE [Concomitant]
     Route: 048
  7. DOXORUBICIN HCL [Concomitant]
  8. CYCLOPHOSPHAMIDE [Concomitant]

REACTIONS (1)
  - ILEUS [None]
